FAERS Safety Report 6864262-3 (Version None)
Quarter: 2010Q3

REPORT INFORMATION
  Report Type: 
  Country: None (occurrence: None)
  Receive Date: 20100721
  Receipt Date: 20080324
  Transmission Date: 20110219
  Serious: No
  Sender: FDA-Public Use
  Company Number: US-PFIZER INC-2008026651

PATIENT
  Sex: Female
  Weight: 64.4 kg

DRUGS (9)
  1. CHANTIX [Suspect]
     Indication: SMOKING CESSATION THERAPY
     Route: 048
     Dates: start: 20080201
  2. PLAVIX [Concomitant]
     Route: 048
  3. ALL OTHER THERAPEUTIC PRODUCTS [Concomitant]
     Route: 048
  4. ALL OTHER THERAPEUTIC PRODUCTS [Concomitant]
     Route: 048
  5. CARDIZEM [Concomitant]
     Route: 048
  6. ACCUPRIL [Concomitant]
     Route: 048
  7. LIPITOR [Concomitant]
     Route: 048
  8. NIACIN [Concomitant]
     Route: 048
  9. PROZAC [Concomitant]
     Route: 048

REACTIONS (3)
  - DEPRESSED MOOD [None]
  - HYPERSOMNIA [None]
  - MOOD ALTERED [None]
